FAERS Safety Report 8449778-0 (Version None)
Quarter: 2012Q2

REPORT INFORMATION
  Report Type: 
  Country: None (occurrence: None)
  Receive Date: 20120620
  Receipt Date: 20120612
  Transmission Date: 20120825
  Serious: Yes (Hospitalization)
  Sender: FDA-Public Use
  Company Number: US-BAYER-2012-059543

PATIENT
  Age: 37 Year
  Sex: Female

DRUGS (4)
  1. IRON TABLETS [Concomitant]
  2. YAZ [Suspect]
  3. DEPO-PROVERA [Concomitant]
     Indication: UTERINE LEIOMYOMA
  4. YASMIN [Suspect]

REACTIONS (2)
  - PULMONARY EMBOLISM [None]
  - DEEP VEIN THROMBOSIS [None]
